FAERS Safety Report 24808440 (Version 1)
Quarter: 2025Q1

REPORT INFORMATION
  Report Type: Spontaneous
  Country: US (occurrence: US)
  Receive Date: 20250106
  Receipt Date: 20250106
  Transmission Date: 20250408
  Serious: No
  Sender: ALKEM
  Company Number: US-ALKEM LABORATORIES LIMITED-US-ALKEM-2024-19770

PATIENT

DRUGS (5)
  1. TACROLIMUS [Suspect]
     Active Substance: TACROLIMUS
     Indication: Immunosuppressant drug therapy
     Route: 048
  2. BASILIXIMAB [Suspect]
     Active Substance: BASILIXIMAB
     Indication: Drug therapy
     Route: 065
  3. BASILIXIMAB [Suspect]
     Active Substance: BASILIXIMAB
     Route: 065
  4. BLESELUMAB [Suspect]
     Active Substance: BLESELUMAB
     Indication: Immunosuppressant drug therapy
     Route: 042
  5. BLESELUMAB [Suspect]
     Active Substance: BLESELUMAB
     Indication: Focal segmental glomerulosclerosis

REACTIONS (1)
  - Cytomegalovirus infection [Unknown]
